FAERS Safety Report 20961801 (Version 1)
Quarter: 2022Q2

REPORT INFORMATION
  Report Type: Spontaneous
  Country: US (occurrence: None)
  Receive Date: 20220614
  Receipt Date: 20220614
  Transmission Date: 20220721
  Serious: No
  Sender: FDA-Public Use
  Company Number: None

PATIENT
  Age: 69 Year
  Sex: Female

DRUGS (1)
  1. CAPECITABINE [Suspect]
     Active Substance: CAPECITABINE
     Dosage: FREQUENCY : TWICE A DAY;?
     Route: 048
     Dates: start: 202204

REACTIONS (11)
  - Nausea [None]
  - Vomiting [None]
  - Diarrhoea [None]
  - Loss of consciousness [None]
  - Dehydration [None]
  - Heart rate decreased [None]
  - Paraesthesia [None]
  - Hypoaesthesia [None]
  - Burning sensation [None]
  - Skin discolouration [None]
  - Skin exfoliation [None]

NARRATIVE: CASE EVENT DATE: 20220516
